FAERS Safety Report 10711478 (Version 2)
Quarter: 2015Q1

REPORT INFORMATION
  Report Type: Spontaneous
  Country: FR (occurrence: FR)
  Receive Date: 20150114
  Receipt Date: 20150312
  Transmission Date: 20150721
  Serious: No
  Sender: FDA-Public Use
  Company Number: FR-ROCHE-1521381

PATIENT
  Sex: Female

DRUGS (1)
  1. ZELBORAF [Suspect]
     Active Substance: VEMURAFENIB
     Indication: MALIGNANT MELANOMA
     Dosage: IN THE MORNING AND IN THE EVENING (STILL ONGOING)
     Route: 048
     Dates: start: 20111124

REACTIONS (3)
  - Supraventricular tachyarrhythmia [Unknown]
  - Diarrhoea [Not Recovered/Not Resolved]
  - Septal panniculitis [Recovering/Resolving]

NARRATIVE: CASE EVENT DATE: 201203
